FAERS Safety Report 8373857-X (Version None)
Quarter: 2012Q2

REPORT INFORMATION
  Report Type: 
  Country: None (occurrence: None)
  Receive Date: 20120521
  Receipt Date: 20120509
  Transmission Date: 20120825
  Serious: Yes (Life-Threatening)
  Sender: FDA-Public Use
  Company Number: JP-ASTRAZENECA-2012SE30742

PATIENT
  Age: 29 Year
  Sex: Male

DRUGS (1)
  1. CANDESARTAN CILEXETIL [Suspect]
     Indication: HYPERTENSION
     Route: 048

REACTIONS (2)
  - VENTRICULAR EXTRASYSTOLES [None]
  - HYPOKALAEMIA [None]
